FAERS Safety Report 25105313 (Version 2)
Quarter: 2025Q1

REPORT INFORMATION
  Report Type: Spontaneous
  Country: GB (occurrence: GB)
  Receive Date: 20250321
  Receipt Date: 20250327
  Transmission Date: 20250409
  Serious: Yes (Other)
  Sender: THEA PHARMA INC.
  Company Number: GB-THEA-2025000552

PATIENT
  Sex: Female

DRUGS (8)
  1. LATANOPROST [Suspect]
     Active Substance: LATANOPROST
     Indication: Glaucoma
     Route: 047
     Dates: start: 2024
  2. Cosopt eyedrops [Concomitant]
     Indication: Glaucoma
     Dates: start: 202308
  3. LEVOTHYROXINE [Concomitant]
     Active Substance: LEVOTHYROXINE
     Indication: Product used for unknown indication
  4. LISINOPRIL [Concomitant]
     Active Substance: LISINOPRIL
     Indication: Product used for unknown indication
  5. Tradzadone [Concomitant]
     Indication: Product used for unknown indication
  6. FEXOFENADINE HYDROCHLORIDE [Concomitant]
     Active Substance: FEXOFENADINE HYDROCHLORIDE
     Indication: Pruritus
  7. Strivit-D3 800 IU capsules [Concomitant]
     Indication: Product used for unknown indication
  8. Denosumab injections [Concomitant]
     Indication: Osteoporosis
     Dosage: TWICE YEARLY

REACTIONS (10)
  - Skin reaction [Not Recovered/Not Resolved]
  - Urticaria [Not Recovered/Not Resolved]
  - Pruritus [Not Recovered/Not Resolved]
  - Skin burning sensation [Not Recovered/Not Resolved]
  - Paraesthesia [Not Recovered/Not Resolved]
  - Dermatitis [Not Recovered/Not Resolved]
  - Precancerous skin lesion [Not Recovered/Not Resolved]
  - Blister [Not Recovered/Not Resolved]
  - Skin irritation [Not Recovered/Not Resolved]
  - Rash [Unknown]
